FAERS Safety Report 8716257 (Version 2)
Quarter: 2013Q1

REPORT INFORMATION
  Report Type: Report from Study
  Country: JP (occurrence: JP)
  Receive Date: 20120810
  Receipt Date: 20130207
  Transmission Date: 20140127
  Serious: Yes (Other)
  Sender: FDA-Public Use
  Company Number: JP-009507513-1207JPN012694

PATIENT
  Age: 52 Year
  Sex: Male
  Weight: 88 kg

DRUGS (15)
  1. PEGINTRON [Suspect]
     Indication: CHRONIC HEPATITIS C
     Dosage: 1.4 MICROGRAM PER KILOGRAM, QW
     Route: 058
     Dates: start: 20120524, end: 20121031
  2. REBETOL [Suspect]
     Indication: CHRONIC HEPATITIS C
     Dosage: 1000 MG, QD
     Route: 048
     Dates: start: 20120524, end: 20121107
  3. TELAVIC [Suspect]
     Indication: CHRONIC HEPATITIS C
     Dosage: 2250 MG, QD
     Route: 048
     Dates: start: 20120524, end: 20120618
  4. TELAVIC [Suspect]
     Dosage: 1500 MG, QD
     Route: 048
     Dates: start: 20120619, end: 20120815
  5. NU-LOTAN [Concomitant]
     Indication: HYPERTENSION
     Dosage: FORMULATION POR
     Route: 048
  6. AMLODIN OD [Concomitant]
     Indication: HYPERTENSION
     Dosage: 5 MG, QD
     Route: 048
     Dates: end: 20120711
  7. XYZAL [Concomitant]
     Indication: PROPHYLAXIS
     Dosage: 10 MG, QD
     Route: 048
     Dates: start: 20120524
  8. VOLTAREN SR [Concomitant]
     Indication: PROPHYLAXIS
     Dosage: 37.5 MG, QD AS NEEDED, FORMULATION POR
     Route: 048
     Dates: start: 20120524
  9. PREDONINE [Concomitant]
     Indication: SKIN DISORDER
     Dosage: 30 MG, QD
     Route: 048
     Dates: start: 20120526, end: 20120601
  10. PREDONINE [Concomitant]
     Dosage: 25 MG, QD
     Route: 048
     Dates: start: 20120602
  11. PREDONINE [Concomitant]
     Dosage: 20 MG, QD
     Route: 048
     Dates: start: 20120609
  12. PREDONINE [Concomitant]
     Dosage: 15 MG, QD
     Route: 048
     Dates: start: 20120616
  13. PREDONINE [Concomitant]
     Dosage: 10 MG, QD
     Route: 048
     Dates: start: 20120620
  14. PREDONINE [Concomitant]
     Dosage: 5 MG, QD
     Route: 048
     Dates: start: 20120704
  15. MYSER (DIFLUPREDNATE) [Concomitant]
     Indication: SKIN DISORDER
     Dosage: 10 G, QD
     Route: 061
     Dates: start: 20120528, end: 20120618

REACTIONS (1)
  - Drug eruption [Recovered/Resolved]
